FAERS Safety Report 8609637-7 (Version None)
Quarter: 2012Q3

REPORT INFORMATION
  Report Type: 
  Country: None (occurrence: None)
  Receive Date: 20120423
  Receipt Date: 20090203
  Transmission Date: 20120928
  Serious: Yes (Other)
  Sender: FDA-Public Use
  Company Number: PHEH2008US11365

PATIENT
  Sex: Female

DRUGS (2)
  1. FASLODEX [Concomitant]
  2. FEMARA [Suspect]
     Dosage: 2.5 MG, QD, ORAL
     Route: 048
     Dates: start: 20081016, end: 20081215

REACTIONS (1)
  - METASTASES TO LIVER [None]
